FAERS Safety Report 19984422 (Version 1)
Quarter: 2021Q4

REPORT INFORMATION
  Report Type: Spontaneous
  Country: US (occurrence: US)
  Receive Date: 20211022
  Receipt Date: 20211022
  Transmission Date: 20220303
  Serious: No
  Sender: FDA-Public Use
  Company Number: US-STRIDES ARCOLAB LIMITED-2020SP015714

PATIENT
  Sex: Male

DRUGS (3)
  1. OMEGA-3-ACID ETHYL ESTERS [Suspect]
     Active Substance: OMEGA-3-ACID ETHYL ESTERS
     Indication: Blood cholesterol increased
     Dosage: UNK
     Route: 065
  2. OMEGA-3-ACID ETHYL ESTERS [Suspect]
     Active Substance: OMEGA-3-ACID ETHYL ESTERS
     Dosage: 1 GRAM
     Route: 048
     Dates: start: 20201021, end: 20201209
  3. AMLODIPINE [Concomitant]
     Active Substance: AMLODIPINE BESYLATE
     Indication: Product used for unknown indication
     Dosage: 5 MILLIGRAM
     Route: 065

REACTIONS (3)
  - Diarrhoea [Recovered/Resolved]
  - Product leakage [Unknown]
  - Product physical issue [Unknown]

NARRATIVE: CASE EVENT DATE: 20200101
